FAERS Safety Report 7057183-7 (Version None)
Quarter: 2010Q4

REPORT INFORMATION
  Report Type: 
  Country: None (occurrence: None)
  Receive Date: 20101022
  Receipt Date: 20101006
  Transmission Date: 20110411
  Serious: Yes (Other)
  Sender: FDA-Public Use
  Company Number: US-BAYER-201034586NA

PATIENT
  Age: 77 Year
  Sex: Male

DRUGS (10)
  1. SORAFENIB OR PLACEBO [Suspect]
     Indication: HEPATIC NEOPLASM MALIGNANT
     Dosage: TOTAL DAILY DOSE: 800 MG  UNIT DOSE: 200 MG
     Route: 048
     Dates: start: 20100524, end: 20100601
  2. ALLOPURINOL [Concomitant]
  3. FOLIC ACID [Concomitant]
  4. GLIPIZIDE [Concomitant]
  5. LEVOTHYROXINE [Concomitant]
  6. METFORMIN [Concomitant]
  7. ASCORBIC ACID [Concomitant]
  8. GARLIC [Concomitant]
  9. MULTI-VITAMIN [Concomitant]
  10. VITAMIN E [Concomitant]

REACTIONS (1)
  - EXTRASYSTOLES [None]
